FAERS Safety Report 24134647 (Version 1)
Quarter: 2024Q3

REPORT INFORMATION
  Report Type: Spontaneous
  Country: US (occurrence: US)
  Receive Date: 20240725
  Receipt Date: 20240725
  Transmission Date: 20241016
  Serious: No
  Sender: BRISTOL MYERS SQUIBB
  Company Number: US-BRISTOL-MYERS SQUIBB COMPANY-2024-117896

PATIENT
  Age: 63 Year
  Sex: Female

DRUGS (3)
  1. SPRYCEL [Suspect]
     Active Substance: DASATINIB
     Indication: Leukaemia
     Dosage: FREQ : EVERY OTHER DAY
     Route: 048
     Dates: start: 2023, end: 20240621
  2. SPRYCEL [Suspect]
     Active Substance: DASATINIB
     Route: 048
  3. SPRYCEL [Suspect]
     Active Substance: DASATINIB
     Route: 048

REACTIONS (3)
  - Eating disorder [Recovering/Resolving]
  - Weight decreased [Unknown]
  - Off label use [Unknown]
